FAERS Safety Report 23970523 (Version 1)
Quarter: 2024Q2

REPORT INFORMATION
  Report Type: Spontaneous
  Country: US (occurrence: US)
  Receive Date: 20240613
  Receipt Date: 20240613
  Transmission Date: 20240716
  Serious: No
  Sender: FDA-Public Use
  Company Number: US-JNJFOC-20240588089

PATIENT
  Age: 51 Year
  Sex: Female
  Weight: 78.8 kg

DRUGS (11)
  1. BENADRYL [Suspect]
     Active Substance: DIPHENHYDRAMINE HYDROCHLORIDE
     Indication: Premedication
     Route: 065
     Dates: start: 20230515
  2. TYLENOL [Suspect]
     Active Substance: ACETAMINOPHEN
     Indication: Premedication
     Route: 065
     Dates: start: 20230515
  3. BRIUMVI [Concomitant]
     Active Substance: UBLITUXIMAB-XIIY
     Indication: Multiple sclerosis
     Route: 042
     Dates: start: 20230515
  4. BRIUMVI [Concomitant]
     Active Substance: UBLITUXIMAB-XIIY
     Route: 042
     Dates: start: 20231103, end: 20231103
  5. BACLOFEN [Concomitant]
     Active Substance: BACLOFEN
     Indication: Product used for unknown indication
     Route: 065
  6. MODAFINIL [Concomitant]
     Active Substance: MODAFINIL
     Indication: Product used for unknown indication
     Route: 065
  7. TOPIRAMATE [Concomitant]
     Active Substance: TOPIRAMATE
     Indication: Product used for unknown indication
     Route: 065
  8. VITAMIN B1 [Concomitant]
     Active Substance: THIAMINE HYDROCHLORIDE
     Indication: Product used for unknown indication
     Route: 065
  9. ERGOCALCIFEROL [Concomitant]
     Active Substance: ERGOCALCIFEROL
     Indication: Product used for unknown indication
     Route: 065
  10. NURTEC ODT [Concomitant]
     Active Substance: RIMEGEPANT SULFATE
     Indication: Product used for unknown indication
     Route: 065
  11. MAGNESIUM [Concomitant]
     Active Substance: MAGNESIUM
     Indication: Product used for unknown indication
     Route: 065

REACTIONS (2)
  - Fatigue [Recovered/Resolved]
  - Off label use [Unknown]

NARRATIVE: CASE EVENT DATE: 20230515
